FAERS Safety Report 13533407 (Version 1)
Quarter: 2017Q2

REPORT INFORMATION
  Report Type: Spontaneous
  Country: US (occurrence: US)
  Receive Date: 20170510
  Receipt Date: 20170510
  Transmission Date: 20170830
  Serious: No
  Sender: FDA-Public Use
  Company Number: US-BAYER-2017-086799

PATIENT
  Age: 88 Year
  Sex: Female
  Weight: 39.91 kg

DRUGS (3)
  1. AMLODIPINE [Concomitant]
     Active Substance: AMLODIPINE BESYLATE
     Dosage: UNK
  2. REMODULIN [Interacting]
     Active Substance: TREPROSTINIL
     Indication: PULMONARY ARTERIAL HYPERTENSION
     Dosage: 0.004 ?G/KG, UNK
     Dates: start: 20150122
  3. ADEMPAS [Suspect]
     Active Substance: RIOCIGUAT
     Indication: PRODUCT USED FOR UNKNOWN INDICATION
     Dosage: 0.5 MG, TID

REACTIONS (4)
  - Diarrhoea [Unknown]
  - Fatigue [Unknown]
  - Malaise [Unknown]
  - Dyspnoea [Unknown]
